FAERS Safety Report 23534423 (Version 3)
Quarter: 2024Q1

REPORT INFORMATION
  Report Type: Spontaneous
  Country: US (occurrence: US)
  Receive Date: 20240217
  Receipt Date: 20240221
  Transmission Date: 20240410
  Serious: No
  Sender: FDA-Public Use
  Company Number: US-JNJFOC-20240219176

PATIENT
  Sex: Female

DRUGS (1)
  1. MOTRIN [Suspect]
     Active Substance: IBUPROFEN
     Indication: Product used for unknown indication
     Route: 065

REACTIONS (1)
  - Drug ineffective [Unknown]
